FAERS Safety Report 6770524-0 (Version None)
Quarter: 2010Q2

REPORT INFORMATION
  Report Type: 
  Country: None (occurrence: None)
  Receive Date: 20100610
  Receipt Date: 20100607
  Transmission Date: 20101027
  Serious: Yes (Other)
  Sender: FDA-Public Use
  Company Number: 2010SP025470

PATIENT
  Age: 54 Year
  Sex: Male

DRUGS (2)
  1. PEG-INTRON [Suspect]
     Indication: HEPATITIS C
     Dosage: SC
     Route: 058
     Dates: start: 20100122
  2. RIBASPHERE [Suspect]
     Indication: HEPATITIS C
     Dates: start: 20100122

REACTIONS (6)
  - ARTHRALGIA [None]
  - BLOOD PRESSURE INCREASED [None]
  - CONTUSION [None]
  - INFLUENZA LIKE ILLNESS [None]
  - PHLEBITIS [None]
  - THIRST [None]
